FAERS Safety Report 5366388-2 (Version None)
Quarter: 2007Q2

REPORT INFORMATION
  Report Type: 
  Country: None (occurrence: None)
  Receive Date: 20070622
  Receipt Date: 20070611
  Transmission Date: 20071010
  Serious: Yes (Other)
  Sender: FDA-Public Use
  Company Number: PHEH2007US08590

PATIENT
  Age: 72 Year
  Sex: Female

DRUGS (19)
  1. BSS [Concomitant]
     Indication: TRABECULECTOMY
     Dosage: UNK, ONCE/SINGLE
     Dates: start: 20070606, end: 20070606
  2. LIDOCAINE [Concomitant]
     Indication: TRABECULECTOMY
     Dosage: 4 %, ONCE/SINGLE
     Dates: start: 20070606, end: 20070606
  3. TETRACAINE POLYGYL STERILE OPHTHALMIC SOLUTION [Concomitant]
     Indication: TRABECULECTOMY
     Dosage: 0.5 ML, ONCE/SINGLE
     Dates: start: 20070606, end: 20070606
  4. MITOMYCIN [Concomitant]
     Indication: TRABECULECTOMY
     Dosage: 0.03 %, ONCE/SINGLE
     Dates: start: 20070606, end: 20070606
  5. MIOCHOL-E [Suspect]
     Indication: MYDRIASIS
     Dosage: UNK, ONCE/SINGLE
     Dates: start: 20070606, end: 20070606
  6. MAXITROL [Concomitant]
     Indication: TRABECULECTOMY
     Dosage: UNK, ONCE/SINGLE
     Dates: start: 20070606, end: 20070606
  7. COZAAR [Concomitant]
  8. AMBIEN [Concomitant]
  9. CALCIUM CHLORIDE [Concomitant]
  10. AMIODARONE HCL [Concomitant]
  11. HYDROCHLOROTHIAZIDE [Concomitant]
  12. FOSAMAX [Concomitant]
  13. FLEXERIL [Concomitant]
  14. LYRICA [Concomitant]
  15. SYNTHROID [Concomitant]
  16. GLUCOSAMINE W/CHONDROITIN [Concomitant]
  17. ANTICOAGULANTS [Concomitant]
  18. MULTIVITAMINS, OTHER COMBINATIONS [Concomitant]
  19. CITRACAL [Concomitant]

REACTIONS (3)
  - CORNEAL OEDEMA [None]
  - TOXIC ANTERIOR SEGMENT SYNDROME [None]
  - VISUAL ACUITY REDUCED [None]
